FAERS Safety Report 16067673 (Version 3)
Quarter: 2020Q1

REPORT INFORMATION
  Report Type: Spontaneous
  Country: GB (occurrence: GB)
  Receive Date: 20190313
  Receipt Date: 20200205
  Transmission Date: 20200409
  Serious: Yes (Hospitalization, Congenital Anomaly, Other)
  Sender: FDA-Public Use
  Company Number: GB-PFIZER INC-2019106585

PATIENT
  Sex: Male
  Weight: .8 kg

DRUGS (2)
  1. CLINDAMYCIN HCL [Suspect]
     Active Substance: CLINDAMYCIN HYDROCHLORIDE
     Indication: VAGINAL INFECTION
     Dosage: UNK
     Route: 064
  2. BETAMETHASONE. [Suspect]
     Active Substance: BETAMETHASONE
     Indication: MATERNAL THERAPY TO ENHANCE FOETAL LUNG MATURITY
     Dosage: UNK
     Route: 064

REACTIONS (16)
  - Maternal exposure during pregnancy [Unknown]
  - C-reactive protein increased [Unknown]
  - Scab [Recovered/Resolved]
  - Keratitis [Unknown]
  - Rash neonatal [Unknown]
  - Skin lesion [Unknown]
  - Scar [Unknown]
  - Eyelid function disorder [Unknown]
  - Congenital herpes simplex infection [Recovered/Resolved]
  - Drug ineffective [Unknown]
  - Premature baby [Unknown]
  - Skin ulcer [Unknown]
  - Skin erosion [Recovered/Resolved]
  - Periorbital disorder [Unknown]
  - Erythema [Unknown]
  - Vertical infection transmission [Unknown]
